FAERS Safety Report 4811900-2 (Version None)
Quarter: 2005Q4

REPORT INFORMATION
  Report Type: 
  Country: None (occurrence: None)
  Receive Date: 20051028
  Receipt Date: 20041015
  Transmission Date: 20060501
  Serious: No
  Sender: FDA-Public Use
  Company Number: US-GLAXOSMITHKLINE-A0530045A

PATIENT
  Age: 26 Year
  Sex: Female
  Weight: 70.5 kg

DRUGS (4)
  1. ADVAIR DISKUS 100/50 [Suspect]
     Indication: ASTHMA
     Dosage: 1PUFF TWICE PER DAY
     Route: 055
     Dates: start: 20030101
  2. NASONEX [Concomitant]
  3. ALLEGRA [Concomitant]
  4. SINGULAIR [Concomitant]

REACTIONS (1)
  - ALOPECIA [None]
